FAERS Safety Report 5168449-X (Version None)
Quarter: 2006Q4

REPORT INFORMATION
  Report Type: 
  Country: None (occurrence: None)
  Receive Date: 20061208
  Receipt Date: 20061128
  Transmission Date: 20070319
  Serious: Yes (Other)
  Sender: FDA-Public Use
  Company Number: CA-ROCHE-472770

PATIENT
  Age: 36 Year
  Sex: Female
  Weight: 84 kg

DRUGS (4)
  1. TAMIFLU [Suspect]
     Indication: DRUG USE FOR UNKNOWN INDICATION
     Route: 048
  2. IBUPROFEN [Concomitant]
  3. PERCOCET [Concomitant]
  4. BUDESONIDE [Concomitant]
     Route: 055

REACTIONS (8)
  - CROHN'S DISEASE [None]
  - DIARRHOEA [None]
  - HEADACHE [None]
  - MUSCULOSKELETAL PAIN [None]
  - MYALGIA [None]
  - NAUSEA [None]
  - NECK PAIN [None]
  - VOMITING [None]
